FAERS Safety Report 6498822-9 (Version None)
Quarter: 2009Q4

REPORT INFORMATION
  Report Type: 
  Country: None (occurrence: None)
  Receive Date: 20091127
  Receipt Date: 20081016
  Transmission Date: 20100525
  Serious: Yes (Hospitalization)
  Sender: FDA-Public Use
  Company Number: 280462

PATIENT
  Age: 58 Year
  Sex: Male

DRUGS (2)
  1. NOVOLOG [Suspect]
     Indication: TYPE 1 DIABETES MELLITUS
     Dosage: 17 IU, SUBCUTANEOUS
     Route: 058
  2. LANTUS [Concomitant]

REACTIONS (1)
  - DIABETIC KETOACIDOSIS [None]
